FAERS Safety Report 7328289-X (Version None)
Quarter: 2011Q1

REPORT INFORMATION
  Report Type: 
  Country: None (occurrence: None)
  Receive Date: 20110224
  Receipt Date: 20110224
  Transmission Date: 20110831
  Serious: Yes (Hospitalization)
  Sender: FDA-Public Use
  Company Number: None

PATIENT
  Age: 76 Year
  Sex: Female
  Weight: 55.611 kg

DRUGS (3)
  1. GEMCITABINE [Suspect]
     Indication: PANCREATIC CARCINOMA
     Dosage: 800MG Q2WK DAYS1+15
     Dates: start: 20101229, end: 20110209
  2. ERLOTINIB [Suspect]
     Indication: PANCREATIC CARCINOMA
     Dosage: 150MG DAYS3-8 + 17-22
     Dates: start: 20101231, end: 20110215
  3. OXALIPLATIN [Suspect]
     Indication: PANCREATIC CARCINOMA
     Dosage: 85MG/M2 Q2WKS DAYS 2+16
     Dates: start: 20101230, end: 20110210

REACTIONS (1)
  - DEHYDRATION [None]
